FAERS Safety Report 10876436 (Version 1)
Quarter: 2015Q1

REPORT INFORMATION
  Report Type: Report from Study
  Country: BR (occurrence: BR)
  Receive Date: 20150228
  Receipt Date: 20150228
  Transmission Date: 20150721
  Serious: Yes (Life-Threatening)
  Sender: FDA-Public Use
  Company Number: PHHY2015BR023777

PATIENT
  Sex: Female

DRUGS (1)
  1. FORASEQ [Suspect]
     Active Substance: BUDESONIDE\FORMOTEROL FUMARATE
     Indication: DYSPNOEA
     Route: 065

REACTIONS (3)
  - Dyspnoea [Unknown]
  - Product use issue [Unknown]
  - Apparent death [Unknown]

NARRATIVE: CASE EVENT DATE: 20150225
